FAERS Safety Report 5253957-3 (Version None)
Quarter: 2007Q1

REPORT INFORMATION
  Report Type: 
  Country: None (occurrence: None)
  Receive Date: 20070228
  Receipt Date: 20070228
  Transmission Date: 20070707
  Serious: Yes (Disabling)
  Sender: FDA-Public Use
  Company Number: None

PATIENT
  Age: 56 Year
  Sex: Male
  Weight: 57 kg

DRUGS (1)
  1. PROVIGIL [Suspect]
     Dosage: 200MG DAILY
     Dates: start: 20070118, end: 20070122

REACTIONS (1)
  - TARDIVE DYSKINESIA [None]
